FAERS Safety Report 25533151 (Version 2)
Quarter: 2025Q3

REPORT INFORMATION
  Report Type: Spontaneous
  Country: EU (occurrence: EU)
  Receive Date: 20250709
  Receipt Date: 20250716
  Transmission Date: 20251021
  Serious: Yes (Hospitalization, Other)
  Sender: AUROBINDO
  Company Number: EU-MENARINI-IT-MEN-114955

PATIENT
  Age: 74 Year
  Sex: Male

DRUGS (3)
  1. BISOPROLOL [Suspect]
     Active Substance: BISOPROLOL
     Indication: Product used for unknown indication
     Route: 065
  2. CLOPIDOGREL BISULFATE [Suspect]
     Active Substance: CLOPIDOGREL BISULFATE
     Indication: Product used for unknown indication
     Route: 048
  3. PANTOPRAZOLE [Suspect]
     Active Substance: PANTOPRAZOLE
     Indication: Product used for unknown indication
     Route: 065

REACTIONS (1)
  - Acquired haemophilia [Recovered/Resolved]
